FAERS Safety Report 7419778-8 (Version None)
Quarter: 2011Q2

REPORT INFORMATION
  Report Type: 
  Country: None (occurrence: None)
  Receive Date: 20110418
  Receipt Date: 20110404
  Transmission Date: 20111010
  Serious: Yes (Other)
  Sender: FDA-Public Use
  Company Number: CA-JNJFOC-20110402629

PATIENT
  Sex: Female
  Weight: 56 kg

DRUGS (5)
  1. METHOTREXATE [Concomitant]
     Route: 065
  2. REMICADE [Suspect]
     Indication: CROHN'S DISEASE
     Route: 042
  3. REMICADE [Suspect]
     Route: 042
  4. REMICADE [Suspect]
     Route: 042
  5. YAZ [Concomitant]
     Route: 065

REACTIONS (6)
  - DYSPNOEA [None]
  - PERIORBITAL OEDEMA [None]
  - TACHYCARDIA [None]
  - VOMITING [None]
  - INFUSION RELATED REACTION [None]
  - FLUSHING [None]
